FAERS Safety Report 9150004 (Version 2)
Quarter: 2013Q1

REPORT INFORMATION
  Report Type: Spontaneous
  Country: US (occurrence: None)
  Receive Date: 20130129
  Receipt Date: 20130328
  Transmission Date: 20140127
  Serious: Yes (Hospitalization)
  Sender: FDA-Public Use
  Company Number: MC201300024

PATIENT
  Age: 60 Year
  Sex: Male
  Weight: 86.3 kg

DRUGS (2)
  1. ANGIOMAX, ANGIOX (BIVALIRUDIN) INJECTION [Suspect]
     Indication: PRODUCT USED FOR UNKNOWN INDICATION
     Dosage: 13ML (0.75 MG/KG) BOLUS, INTRAVENOUS
     Route: 040
  2. NORMAL SALINE (NORMAL SALINE) [Concomitant]

REACTIONS (4)
  - Coronary artery thrombosis [None]
  - Device malfunction [None]
  - Underdose [None]
  - Acute myocardial infarction [None]
